FAERS Safety Report 7984527-1 (Version None)
Quarter: 2011Q4

REPORT INFORMATION
  Report Type: 
  Country: None (occurrence: None)
  Receive Date: 20111216
  Receipt Date: 20111205
  Transmission Date: 20120403
  Serious: Yes (Other)
  Sender: FDA-Public Use
  Company Number: US-JNJFOC-20111202352

PATIENT
  Sex: Male
  Weight: 73.94 kg

DRUGS (8)
  1. LIALDA [Concomitant]
  2. REMICADE [Suspect]
     Indication: CROHN'S DISEASE
     Route: 042
  3. DEXILANT [Concomitant]
  4. SYNTHROID [Concomitant]
  5. CARDURA [Concomitant]
  6. CARDIZEM [Concomitant]
  7. DIGOXIN [Concomitant]
  8. LIPITOR [Concomitant]

REACTIONS (1)
  - B-CELL LYMPHOMA [None]
